FAERS Safety Report 12122493 (Version 5)
Quarter: 2016Q2

REPORT INFORMATION
  Report Type: Report from Study
  Country: CN (occurrence: CN)
  Receive Date: 20160226
  Receipt Date: 20160407
  Transmission Date: 20160815
  Serious: Yes (Death, Life-Threatening, Hospitalization)
  Sender: FDA-Public Use
  Company Number: CN-ASTRAZENECA-2016SE19953

PATIENT
  Age: 22797 Day
  Sex: Male

DRUGS (15)
  1. TRAMADOL HYDROCHLORIDE. [Concomitant]
     Active Substance: TRAMADOL HYDROCHLORIDE
     Indication: CANCER PAIN
     Route: 048
     Dates: start: 20150917
  2. TRAMADOL HYDROCHLORIDE. [Concomitant]
     Active Substance: TRAMADOL HYDROCHLORIDE
     Indication: ARTHRALGIA
     Route: 048
     Dates: start: 20150919
  3. LACTULOSE. [Concomitant]
     Active Substance: LACTULOSE
     Indication: CONSTIPATION
     Dosage: 1 BAG, DAILY
     Route: 048
     Dates: start: 20151031
  4. CALTRATE CALCIUM CARBONATE [Concomitant]
     Indication: BLOOD CALCIUM ABNORMAL
     Route: 048
     Dates: start: 201408
  5. TRAMADOL HYDROCHLORIDE. [Concomitant]
     Active Substance: TRAMADOL HYDROCHLORIDE
     Indication: CANCER PAIN
     Route: 048
     Dates: start: 20150919
  6. TRAMADOL HYDROCHLORIDE. [Concomitant]
     Active Substance: TRAMADOL HYDROCHLORIDE
     Indication: ARTHRALGIA
     Route: 048
     Dates: start: 20151010
  7. DIAZEPAM. [Concomitant]
     Active Substance: DIAZEPAM
     Indication: INSOMNIA
     Route: 048
     Dates: start: 20151031
  8. TAGRISSO [Suspect]
     Active Substance: OSIMERTINIB
     Indication: NON-SMALL CELL LUNG CANCER METASTATIC
     Route: 048
     Dates: start: 20150924
  9. UREA. [Concomitant]
     Active Substance: UREA
     Indication: RASH GENERALISED
     Dosage: AS REQUIRED
     Route: 003
     Dates: start: 20151010
  10. TAGRISSO [Suspect]
     Active Substance: OSIMERTINIB
     Indication: NON-SMALL CELL LUNG CANCER METASTATIC
     Route: 048
     Dates: start: 20151203, end: 20160222
  11. CENTRUM [Concomitant]
     Active Substance: VITAMINS
     Indication: NUTRITIONAL SUPPLEMENTATION
     Route: 048
     Dates: start: 201311
  12. TRAMADOL HYDROCHLORIDE. [Concomitant]
     Active Substance: TRAMADOL HYDROCHLORIDE
     Indication: CANCER PAIN
     Route: 048
     Dates: start: 20151010
  13. TRAMADOL HYDROCHLORIDE. [Concomitant]
     Active Substance: TRAMADOL HYDROCHLORIDE
     Indication: ARTHRALGIA
     Route: 048
     Dates: start: 20151015
  14. TRAMADOL HYDROCHLORIDE. [Concomitant]
     Active Substance: TRAMADOL HYDROCHLORIDE
     Indication: ARTHRALGIA
     Route: 048
     Dates: start: 20150917
  15. TRAMADOL HYDROCHLORIDE. [Concomitant]
     Active Substance: TRAMADOL HYDROCHLORIDE
     Indication: CANCER PAIN
     Route: 048
     Dates: start: 20151015

REACTIONS (2)
  - Haemoptysis [Not Recovered/Not Resolved]
  - Dyspnoea [Fatal]

NARRATIVE: CASE EVENT DATE: 20160223
